FAERS Safety Report 9813061 (Version 1)
Quarter: 2014Q1

REPORT INFORMATION
  Report Type: Spontaneous
  Country: US (occurrence: None)
  Receive Date: 20140110
  Receipt Date: 20140110
  Transmission Date: 20141002
  Serious: Yes (Death, Hospitalization)
  Sender: FDA-Public Use
  Company Number: None

PATIENT
  Age: 62 Year
  Sex: Male
  Weight: 74.84 kg

DRUGS (1)
  1. AZITHROMYCIN [Suspect]
     Indication: PNEUMONIA
     Dates: start: 20130130, end: 20130203

REACTIONS (5)
  - Heart rate increased [None]
  - Dyspnoea [None]
  - Heart rate irregular [None]
  - Myocardial infarction [None]
  - Renal failure [None]
